FAERS Safety Report 13273853 (Version 1)
Quarter: 2017Q1

REPORT INFORMATION
  Report Type: Spontaneous
  Country: IT (occurrence: IT)
  Receive Date: 20170227
  Receipt Date: 20170227
  Transmission Date: 20170428
  Serious: Yes (Hospitalization)
  Sender: FDA-Public Use
  Company Number: IT-SA-2017SA031706

PATIENT
  Age: 82 Year
  Sex: Female

DRUGS (12)
  1. XARELTO [Suspect]
     Active Substance: RIVAROXABAN
     Indication: ATRIAL FIBRILLATION
     Route: 048
     Dates: start: 20170119, end: 20170130
  2. PRITOR [Concomitant]
     Active Substance: TELMISARTAN
     Route: 065
     Dates: start: 20170129
  3. XARELTO [Suspect]
     Active Substance: RIVAROXABAN
     Indication: ATRIAL FIBRILLATION
     Route: 048
     Dates: end: 20161231
  4. SIMVASTATIN. [Concomitant]
     Active Substance: SIMVASTATIN
     Route: 065
     Dates: start: 20170129
  5. LASIX [Concomitant]
     Active Substance: FUROSEMIDE
     Route: 065
     Dates: start: 20170129
  6. NOVORAPID [Concomitant]
     Active Substance: INSULIN ASPART
     Route: 065
     Dates: start: 20170129
  7. CLEXANE [Suspect]
     Active Substance: ENOXAPARIN SODIUM
     Route: 051
     Dates: start: 20161231, end: 20170112
  8. CLEXANE [Suspect]
     Active Substance: ENOXAPARIN SODIUM
     Route: 051
     Dates: start: 20170112
  9. LANTUS [Concomitant]
     Active Substance: INSULIN GLARGINE
     Route: 065
     Dates: start: 20170129
  10. SEQUACOR [Concomitant]
     Active Substance: BISOPROLOL
     Route: 065
     Dates: start: 20170129
  11. LANSOX [Concomitant]
     Active Substance: LANSOPRAZOLE
     Route: 065
     Dates: start: 20170129
  12. XARELTO [Suspect]
     Active Substance: RIVAROXABAN
     Indication: ATRIAL FIBRILLATION
     Route: 048
     Dates: start: 20170104, end: 20170112

REACTIONS (2)
  - Anaemia [Recovering/Resolving]
  - Ischaemic stroke [Recovering/Resolving]

NARRATIVE: CASE EVENT DATE: 20170122
